FAERS Safety Report 25123023 (Version 2)
Quarter: 2025Q2

REPORT INFORMATION
  Report Type: Spontaneous
  Country: US (occurrence: US)
  Receive Date: 20250326
  Receipt Date: 20250404
  Transmission Date: 20250717
  Serious: Yes (Hospitalization, Other)
  Sender: BRISTOL MYERS SQUIBB
  Company Number: US-BRISTOL-MYERS SQUIBB COMPANY-2025-041492

PATIENT
  Age: 87 Year
  Sex: Male
  Weight: 86.64 kg

DRUGS (1)
  1. POMALYST [Suspect]
     Active Substance: POMALIDOMIDE
     Indication: Plasma cell myeloma
     Dosage: 2 WKS ON, 1 WK OFF
     Route: 048
     Dates: start: 20241001

REACTIONS (4)
  - Myocardial infarction [Unknown]
  - Pneumonia [Unknown]
  - Off label use [Unknown]
  - Chest pain [Unknown]
